FAERS Safety Report 15150697 (Version 3)
Quarter: 2018Q3

REPORT INFORMATION
  Report Type: Spontaneous
  Country: BR (occurrence: BR)
  Receive Date: 20180716
  Receipt Date: 20180919
  Transmission Date: 20181010
  Serious: Yes (Other)
  Sender: FDA-Public Use
  Company Number: BR-ALLERGAN-1835354US

PATIENT

DRUGS (2)
  1. RISEDRONATE SODIUM ? BP [Suspect]
     Active Substance: RISEDRONATE SODIUM
     Indication: OSTEOPENIA
     Dosage: 150 MG, Q MONTH
     Route: 048
     Dates: start: 20180703, end: 20180703
  2. CONDRESS [Concomitant]
     Indication: SUPPLEMENTATION THERAPY
     Dosage: 40 MG, QD
     Route: 048
     Dates: start: 20180701

REACTIONS (12)
  - Fatigue [Recovered/Resolved]
  - Photosensitivity reaction [Recovered/Resolved]
  - Pyrexia [Recovered/Resolved]
  - Delusion [Recovered/Resolved]
  - Asthenia [Recovered/Resolved]
  - Off label use [Unknown]
  - Malaise [Recovered/Resolved]
  - Product use issue [Unknown]
  - Pain [Recovered/Resolved]
  - Chills [Recovered/Resolved]
  - Nasopharyngitis [Recovered/Resolved]
  - Headache [Recovered/Resolved]

NARRATIVE: CASE EVENT DATE: 20180703
